FAERS Safety Report 12470391 (Version 3)
Quarter: 2017Q3

REPORT INFORMATION
  Report Type: Report from Study
  Country: US (occurrence: US)
  Receive Date: 20160616
  Receipt Date: 20170703
  Transmission Date: 20171127
  Serious: Yes (Other)
  Sender: FDA-Public Use
  Company Number: US-AMGEN-USASL2016074928

PATIENT
  Age: 60 Year
  Sex: Male

DRUGS (7)
  1. SULFASALAZINE. [Concomitant]
     Active Substance: SULFASALAZINE
     Dosage: UNK
     Dates: start: 20170424, end: 20170615
  2. ENBREL [Suspect]
     Active Substance: ETANERCEPT
     Indication: SCLERODERMA
     Dosage: UNK
     Route: 065
  3. ARAVA [Suspect]
     Active Substance: LEFLUNOMIDE
     Indication: PRODUCT USED FOR UNKNOWN INDICATION
     Dosage: UNK
     Route: 065
  4. ENBREL [Suspect]
     Active Substance: ETANERCEPT
     Indication: RHEUMATOID ARTHRITIS
     Dosage: 50 MG, QWK
     Route: 065
     Dates: start: 20160608, end: 201608
  5. ENBREL [Suspect]
     Active Substance: ETANERCEPT
     Indication: POLYARTHRITIS
     Dosage: 50 MG, QWK
     Route: 065
     Dates: start: 201609
  6. METHOTREXATE. [Concomitant]
     Active Substance: METHOTREXATE
     Dosage: UNK
  7. ALEVE [Concomitant]
     Active Substance: NAPROXEN SODIUM
     Dosage: 1000 MG, QD
     Route: 065

REACTIONS (14)
  - Upper limb fracture [Unknown]
  - Hip arthroplasty [Unknown]
  - Sinusitis [Unknown]
  - Anosmia [Unknown]
  - Ageusia [Unknown]
  - Chest pain [Unknown]
  - Surgery [Unknown]
  - Knee arthroplasty [Unknown]
  - Abdominal pain upper [Unknown]
  - Laceration [Unknown]
  - Wound secretion [Unknown]
  - Skin haemorrhage [Unknown]
  - Limb operation [Unknown]
  - Cough [Unknown]

NARRATIVE: CASE EVENT DATE: 201606
